FAERS Safety Report 21663010 (Version 1)
Quarter: 2022Q4

REPORT INFORMATION
  Report Type: Report from Study
  Country: PL (occurrence: PL)
  Receive Date: 20221130
  Receipt Date: 20221130
  Transmission Date: 20230113
  Serious: Yes (Hospitalization)
  Sender: FDA-Public Use
  Company Number: PL-GSK-PL2022176871

PATIENT

DRUGS (4)
  1. BELANTAMAB MAFODOTIN [Suspect]
     Active Substance: BELANTAMAB MAFODOTIN
     Indication: Plasma cell myeloma
     Dosage: 104.50 MG (1.90 MG/KG), CYC
     Route: 042
     Dates: start: 20220809, end: 20220809
  2. BORTEZOMIB [Suspect]
     Active Substance: BORTEZOMIB
     Indication: Plasma cell myeloma
     Dosage: 2.02 MG (1.30 MG/M2, CYC
     Route: 058
     Dates: start: 20220809, end: 20220819
  3. DEXAMETHASONE [Suspect]
     Active Substance: DEXAMETHASONE
     Indication: Plasma cell myeloma
     Dosage: 10 MG, CYC
     Route: 048
     Dates: start: 20220809, end: 20220820
  4. LENALIDOMIDE [Suspect]
     Active Substance: LENALIDOMIDE
     Indication: Plasma cell myeloma
     Dosage: 25 CAPSULES,QD
     Route: 048
     Dates: start: 20220809, end: 20220822

REACTIONS (1)
  - Supraventricular extrasystoles [Unknown]
